FAERS Safety Report 5376027-2 (Version None)
Quarter: 2007Q3

REPORT INFORMATION
  Report Type: 
  Country: None (occurrence: None)
  Receive Date: 20070702
  Receipt Date: 20070625
  Transmission Date: 20080115
  Serious: Yes (Death, Other)
  Sender: FDA-Public Use
  Company Number: HQWYE697405APR05

PATIENT
  Sex: Female
  Weight: 76.73 kg

DRUGS (2)
  1. PREMPRO [Suspect]
  2. ACTIVELLA [Suspect]

REACTIONS (1)
  - BREAST CANCER METASTATIC [None]
